FAERS Safety Report 4827277-2 (Version None)
Quarter: 2005Q4

REPORT INFORMATION
  Report Type: 
  Country: None (occurrence: None)
  Receive Date: 20051114
  Receipt Date: 20051031
  Transmission Date: 20060501
  Serious: Yes (Other)
  Sender: FDA-Public Use
  Company Number: 2005AC01733

PATIENT
  Sex: Female
  Weight: 1.7 kg

DRUGS (3)
  1. CANDESARTAN [Suspect]
     Indication: HYPERTENSION
     Dosage: STOPED AT 26 WEEKS GESTATION.
     Route: 064
  2. EBRANTIL [Concomitant]
     Indication: HYPERTENSION
     Dosage: STOPPED AT 26 WEEKS GESTATION.
     Route: 064
  3. HYDROCHLOROTHIAZIDE [Concomitant]
     Indication: HYPERTENSION
     Dosage: STOPPED AT 26 WEEKS GESTATION.
     Route: 064

REACTIONS (16)
  - ACIDOSIS [None]
  - APGAR SCORE LOW [None]
  - CAESAREAN SECTION [None]
  - CHORIOAMNIONITIS [None]
  - CRANIAL SUTURES WIDENING [None]
  - DRUG EXPOSURE DURING PREGNANCY [None]
  - HYPOTONIA NEONATAL [None]
  - MUSCLE CONTRACTIONS INVOLUNTARY [None]
  - NEONATAL ASPHYXIA [None]
  - NEONATAL DISORDER [None]
  - PATENT DUCTUS ARTERIOSUS [None]
  - PREMATURE RUPTURE OF MEMBRANES [None]
  - RED BLOOD CELLS URINE POSITIVE [None]
  - RENAL DYSPLASIA [None]
  - RENIN INCREASED [None]
  - WHITE BLOOD CELLS URINE POSITIVE [None]
